FAERS Safety Report 6181951-7 (Version None)
Quarter: 2009Q2

REPORT INFORMATION
  Report Type: 
  Country: None (occurrence: None)
  Receive Date: 20090505
  Receipt Date: 20090427
  Transmission Date: 20091009
  Serious: Yes (Life-Threatening)
  Sender: FDA-Public Use
  Company Number: IPS_01599_2009

PATIENT
  Sex: Male

DRUGS (1)
  1. APOKYN [Suspect]
     Indication: DRUG USE FOR UNKNOWN INDICATION
     Dosage: (0.2 ML TO 0.4 ML [FREQUENCY UNKNOWN]  SUBCUTANEOUS)
     Route: 058

REACTIONS (1)
  - BLOOD PRESSURE INCREASED [None]
